FAERS Safety Report 9990002 (Version 1)
Quarter: 2014Q1

REPORT INFORMATION
  Report Type: Spontaneous
  Country: US (occurrence: None)
  Receive Date: 20140123
  Receipt Date: 20140123
  Transmission Date: 20141002
  Serious: Yes (Hospitalization)
  Sender: FDA-Public Use
  Company Number: UTC-036361

PATIENT
  Age: 50 Year
  Sex: Male
  Weight: 84 kg

DRUGS (3)
  1. REMODULIN [Suspect]
     Indication: COR PULMONALE CHRONIC
     Dosage: 34.56 UG/KG (0.024 UG/KG, 1 IN 1 MIN)
     Route: 041
     Dates: start: 20130112
  2. WARFARIN (UNKNOWN) [Concomitant]
  3. SILDENAFIL (UNKNOWN) [Concomitant]

REACTIONS (1)
  - Device related infection [None]
